FAERS Safety Report 5709131-7 (Version None)
Quarter: 2008Q2

REPORT INFORMATION
  Report Type: 
  Country: None (occurrence: None)
  Receive Date: 20080416
  Receipt Date: 20080416
  Transmission Date: 20081010
  Serious: Yes (Other)
  Sender: FDA-Public Use
  Company Number: None

PATIENT
  Sex: Female
  Weight: 78.0187 kg

DRUGS (1)
  1. ANBESOL MAXIMUM-BENZOCAINE 20% WYETH -?- [Suspect]
     Indication: SENSITIVITY OF TEETH
     Dates: start: 20080407, end: 20080407

REACTIONS (2)
  - DRUG TOLERANCE [None]
  - SWELLING FACE [None]
